FAERS Safety Report 7446208-2 (Version None)
Quarter: 2011Q2

REPORT INFORMATION
  Report Type: 
  Country: None (occurrence: None)
  Receive Date: 20110429
  Receipt Date: 20110421
  Transmission Date: 20111010
  Serious: No
  Sender: FDA-Public Use
  Company Number: US-JNJFOC-20110410452

PATIENT
  Age: 40 Year
  Sex: Male

DRUGS (1)
  1. INVEGA SUSTENNA [Suspect]
     Indication: PRODUCT USED FOR UNKNOWN INDICATION
     Route: 030

REACTIONS (1)
  - OBSESSIVE-COMPULSIVE DISORDER [None]
